FAERS Safety Report 8771532 (Version 2)
Quarter: 2012Q4

REPORT INFORMATION
  Report Type: 
  Country: JP (occurrence: JP)
  Receive Date: 20120903
  Receipt Date: 20120919
  Transmission Date: 20130627
  Serious: Yes (Hospitalization)
  Sender: FDA-Public Use
  Company Number: JP-PFIZER INC-2012212162

PATIENT
  Age: 81 Year
  Sex: Female
  Weight: 53.5 kg

DRUGS (2)
  1. ADALAT [Suspect]
     Indication: HYPERTENSION
     Dosage: UNK
     Route: 048
  2. NORVASC [Concomitant]
     Indication: HYPERTENSION
     Dosage: UNK
     Route: 048
     Dates: start: 2002

REACTIONS (1)
  - Erythromelalgia [Recovered/Resolved]
